FAERS Safety Report 18589083 (Version 6)
Quarter: 2021Q1

REPORT INFORMATION
  Report Type: Report from Study
  Country: US (occurrence: US)
  Receive Date: 20201208
  Receipt Date: 20210326
  Transmission Date: 20210419
  Serious: Yes (Other)
  Sender: FDA-Public Use
  Company Number: US-CLOVIS ONCOLOGY-CLO-2020-000568

PATIENT
  Age: 73 Year
  Sex: Female

DRUGS (5)
  1. RUBRACA [Suspect]
     Active Substance: RUCAPARIB CAMSYLATE
     Indication: OVARIAN CANCER
     Dosage: 300 MILLIGRAM, BID
     Route: 048
     Dates: start: 20200315, end: 20200325
  2. RUBRACA [Suspect]
     Active Substance: RUCAPARIB CAMSYLATE
     Indication: OVARIAN CANCER
     Dosage: 400 MILLIGRAM, BID
     Route: 048
     Dates: start: 20200417
  3. RUBRACA [Suspect]
     Active Substance: RUCAPARIB CAMSYLATE
     Indication: BREAST CANCER FEMALE
     Dosage: 200 MILLIGRAM, BID
     Route: 048
     Dates: start: 20200417
  4. RUBRACA [Suspect]
     Active Substance: RUCAPARIB CAMSYLATE
     Dosage: 300 MILLIGRAM, BID
     Route: 048
     Dates: start: 20201230, end: 20210127
  5. RUBRACA [Suspect]
     Active Substance: RUCAPARIB CAMSYLATE
     Dosage: UNK
     Dates: start: 202003, end: 20210204

REACTIONS (24)
  - Weight increased [Unknown]
  - Lacrimation increased [Unknown]
  - Carbohydrate antigen 125 increased [Unknown]
  - Sinus congestion [Unknown]
  - Taste disorder [Not Recovered/Not Resolved]
  - Retching [Unknown]
  - Chronic kidney disease [Unknown]
  - Tooth infection [Unknown]
  - Weight decreased [Unknown]
  - Seasonal allergy [Unknown]
  - Tumour marker increased [Not Recovered/Not Resolved]
  - Renal disorder [Unknown]
  - Renal function test abnormal [Unknown]
  - Nodule [Not Recovered/Not Resolved]
  - Nasopharyngitis [Unknown]
  - Fatigue [Not Recovered/Not Resolved]
  - Rhinorrhoea [Not Recovered/Not Resolved]
  - Stomatitis [Unknown]
  - Dysgeusia [Not Recovered/Not Resolved]
  - Laboratory test abnormal [Recovering/Resolving]
  - Decreased appetite [Recovering/Resolving]
  - Hypophagia [Unknown]
  - Malignant neoplasm progression [Not Recovered/Not Resolved]
  - Memory impairment [Unknown]

NARRATIVE: CASE EVENT DATE: 2020
